FAERS Safety Report 20224405 (Version 1)
Quarter: 2021Q4

REPORT INFORMATION
  Report Type: Spontaneous
  Country: US (occurrence: None)
  Receive Date: 20211223
  Receipt Date: 20211223
  Transmission Date: 20220304
  Serious: Yes (Hospitalization)
  Sender: FDA-Public Use
  Company Number: None

PATIENT
  Age: 55 Year
  Sex: Female

DRUGS (1)
  1. BAMLANIVIMAB\ETESEVIMAB [Suspect]
     Active Substance: BAMLANIVIMAB\ETESEVIMAB
     Indication: COVID-19
     Dates: start: 20211213, end: 20211213

REACTIONS (3)
  - Type 2 diabetes mellitus [None]
  - Fibrin D dimer increased [None]
  - Oxygen saturation decreased [None]

NARRATIVE: CASE EVENT DATE: 20211218
